FAERS Safety Report 9127177 (Version 1)
Quarter: 2013Q1

REPORT INFORMATION
  Report Type: Spontaneous
  Country: FR (occurrence: FR)
  Receive Date: 20130228
  Receipt Date: 20130228
  Transmission Date: 20140127
  Serious: Yes (Other)
  Sender: FDA-Public Use
  Company Number: FR-PFIZER INC-2013065966

PATIENT
  Age: 54 Year
  Sex: Female

DRUGS (5)
  1. AROMASINE [Suspect]
     Indication: BREAST CANCER RECURRENT
     Dosage: UNK
     Route: 048
     Dates: start: 20120221
  2. AVASTIN [Suspect]
     Indication: BREAST CANCER RECURRENT
     Dosage: 580 MG, PER CYCLE, 11 CYCLES RECEIVED
     Route: 042
     Dates: start: 20110802, end: 20111220
  3. AVASTIN [Suspect]
     Dosage: 1095 MG, PER CYCLE
     Route: 042
     Dates: start: 20120619, end: 20120828
  4. AVASTIN [Suspect]
     Dosage: UNK
     Route: 042
     Dates: start: 20121218
  5. ZOMETA [Suspect]
     Dosage: UNK
     Route: 042
     Dates: start: 201110, end: 20111220

REACTIONS (2)
  - Osteonecrosis [Recovered/Resolved]
  - Osteonecrosis of jaw [Recovered/Resolved]
